FAERS Safety Report 5905310-4 (Version None)
Quarter: 2008Q4

REPORT INFORMATION
  Report Type: 
  Country: None (occurrence: None)
  Receive Date: 20081001
  Receipt Date: 20080924
  Transmission Date: 20090506
  Serious: No
  Sender: FDA-Public Use
  Company Number: US-B.I. PHARMACEUTICALS,INC./RIDGEFIELD-2008-BP-14936BP

PATIENT
  Sex: Male

DRUGS (1)
  1. SPIRIVA [Suspect]
     Indication: CHRONIC OBSTRUCTIVE PULMONARY DISEASE
     Dosage: 18MCG
     Route: 055
     Dates: start: 20070101, end: 20080923

REACTIONS (7)
  - AMNESIA [None]
  - DRY MOUTH [None]
  - DYSPHONIA [None]
  - GLOSSODYNIA [None]
  - POLLAKIURIA [None]
  - SWOLLEN TONGUE [None]
  - TONGUE DISCOLOURATION [None]
